FAERS Safety Report 22302884 (Version 1)
Quarter: 2023Q2

REPORT INFORMATION
  Report Type: Report from Study
  Country: IT (occurrence: IT)
  Receive Date: 20230510
  Receipt Date: 20230510
  Transmission Date: 20230721
  Serious: Yes (Other)
  Sender: FDA-Public Use
  Company Number: IT-ASGENIA-AS2023003236

PATIENT
  Age: 10 Year
  Sex: Male

DRUGS (28)
  1. DIAZEPAM [Suspect]
     Active Substance: DIAZEPAM
     Indication: Lafora^s myoclonic epilepsy
     Dosage: UNK
     Route: 065
  2. DIAZEPAM [Suspect]
     Active Substance: DIAZEPAM
     Indication: Status epilepticus
  3. LEVETIRACETAM [Suspect]
     Active Substance: LEVETIRACETAM
     Indication: Lafora^s myoclonic epilepsy
     Dosage: MAX 250 CRTS
     Route: 042
  4. LEVETIRACETAM [Suspect]
     Active Substance: LEVETIRACETAM
     Indication: Status epilepticus
  5. LACOSAMIDE [Suspect]
     Active Substance: LACOSAMIDE
     Indication: Lafora^s myoclonic epilepsy
     Dosage: UNK
     Route: 065
  6. LACOSAMIDE [Suspect]
     Active Substance: LACOSAMIDE
     Indication: Status epilepticus
  7. TOPIRAMATE [Suspect]
     Active Substance: TOPIRAMATE
     Indication: Lafora^s myoclonic epilepsy
     Dosage: UNK
     Route: 065
  8. TOPIRAMATE [Suspect]
     Active Substance: TOPIRAMATE
     Indication: Status epilepticus
  9. BRIVARACETAM [Suspect]
     Active Substance: BRIVARACETAM
     Indication: Lafora^s myoclonic epilepsy
     Dosage: 200 MILLIGRAM
     Route: 042
  10. BRIVARACETAM [Suspect]
     Active Substance: BRIVARACETAM
     Indication: Status epilepticus
  11. CLONAZEPAM [Suspect]
     Active Substance: CLONAZEPAM
     Indication: Lafora^s myoclonic epilepsy
     Dosage: UNK
     Route: 065
  12. CLONAZEPAM [Suspect]
     Active Substance: CLONAZEPAM
     Indication: Status epilepticus
  13. MIDAZOLAM [Suspect]
     Active Substance: MIDAZOLAM
     Indication: Lafora^s myoclonic epilepsy
     Dosage: UNK
     Route: 065
  14. MIDAZOLAM [Suspect]
     Active Substance: MIDAZOLAM
     Indication: Status epilepticus
  15. PERAMPANEL [Suspect]
     Active Substance: PERAMPANEL
     Indication: Lafora^s myoclonic epilepsy
     Dosage: UNK
     Route: 065
  16. PERAMPANEL [Suspect]
     Active Substance: PERAMPANEL
     Indication: Status epilepticus
  17. PHENOBARBITAL [Suspect]
     Active Substance: PHENOBARBITAL
     Indication: Lafora^s myoclonic epilepsy
     Dosage: UNK
     Route: 065
  18. PHENOBARBITAL [Suspect]
     Active Substance: PHENOBARBITAL
     Indication: Status epilepticus
  19. PROPOFOL [Suspect]
     Active Substance: PROPOFOL
     Indication: Lafora^s myoclonic epilepsy
     Dosage: UNK
     Route: 065
  20. PROPOFOL [Suspect]
     Active Substance: PROPOFOL
     Indication: Status epilepticus
  21. THIOPENTAL SODIUM [Suspect]
     Active Substance: THIOPENTAL SODIUM
     Indication: Lafora^s myoclonic epilepsy
     Dosage: UNK
     Route: 065
  22. THIOPENTAL SODIUM [Suspect]
     Active Substance: THIOPENTAL SODIUM
     Indication: Status epilepticus
  23. VALPROATE [Suspect]
     Active Substance: VALPROIC ACID
     Indication: Lafora^s myoclonic epilepsy
     Dosage: UNK
     Route: 042
  24. VALPROATE [Suspect]
     Active Substance: VALPROIC ACID
     Indication: Status epilepticus
  25. ZONISAMIDE [Suspect]
     Active Substance: ZONISAMIDE
     Indication: Lafora^s myoclonic epilepsy
     Dosage: UNK
     Route: 065
  26. ZONISAMIDE [Suspect]
     Active Substance: ZONISAMIDE
     Indication: Status epilepticus
  27. PHENYTOIN [Concomitant]
     Active Substance: PHENYTOIN
     Indication: Lafora^s myoclonic epilepsy
     Dosage: 15 MILLIGRAM/KILOGRAM
     Route: 042
  28. PHENYTOIN [Concomitant]
     Active Substance: PHENYTOIN
     Indication: Status epilepticus

REACTIONS (1)
  - Drug ineffective [Unknown]
